FAERS Safety Report 11005259 (Version 1)
Quarter: 2015Q2

REPORT INFORMATION
  Report Type: Spontaneous
  Country: US (occurrence: US)
  Receive Date: 20150409
  Receipt Date: 20150409
  Transmission Date: 20150821
  Serious: Yes (Life-Threatening, Hospitalization, Other)
  Sender: FDA-Public Use
  Company Number: US-ELI_LILLY_AND_COMPANY-US201504000752

PATIENT
  Sex: Female

DRUGS (7)
  1. METOPROLOL [Concomitant]
     Active Substance: METOPROLOL
  2. HUMALOG [Suspect]
     Active Substance: INSULIN LISPRO
     Indication: TYPE 2 DIABETES MELLITUS
     Dosage: 30 U, BID
     Route: 065
     Dates: start: 2010
  3. LIPITOR [Concomitant]
     Active Substance: ATORVASTATIN CALCIUM
  4. HUMALOG [Suspect]
     Active Substance: INSULIN LISPRO
     Dosage: 18 U, QD
     Route: 065
     Dates: start: 2010
  5. HUMALOG [Suspect]
     Active Substance: INSULIN LISPRO
     Dosage: 10 U, TID
     Route: 065
  6. LANTUS [Concomitant]
     Active Substance: INSULIN GLARGINE
  7. HUMALOG [Suspect]
     Active Substance: INSULIN LISPRO
     Dosage: UNK UNK, PRN
     Route: 065

REACTIONS (16)
  - Pericardial effusion [Unknown]
  - Tendonitis [Unknown]
  - Hypertension [Unknown]
  - Diabetic hyperglycaemic coma [Unknown]
  - Amnesia [Recovered/Resolved]
  - Dysphonia [Unknown]
  - Hunger [Unknown]
  - Diabetic hyperglycaemic coma [Unknown]
  - Fibrocystic breast disease [Unknown]
  - Fibroma [Unknown]
  - Renal failure [Unknown]
  - Restless legs syndrome [Unknown]
  - Breast mass [Unknown]
  - Arthritis [Unknown]
  - Thirst [Unknown]
  - Blood glucose decreased [Unknown]

NARRATIVE: CASE EVENT DATE: 2010
